FAERS Safety Report 19325962 (Version 1)
Quarter: 2021Q2

REPORT INFORMATION
  Report Type: Spontaneous
  Country: US (occurrence: US)
  Receive Date: 20210528
  Receipt Date: 20210528
  Transmission Date: 20210717
  Serious: Yes (Hospitalization, Other)
  Sender: FDA-Public Use
  Company Number: US-HIKMA PHARMACEUTICALS USA INC.-US-H14001-21-54513

PATIENT
  Age: 40 Year
  Sex: Female

DRUGS (1)
  1. FUROSEMIDE. [Suspect]
     Active Substance: FUROSEMIDE
     Indication: ACUTE LEFT VENTRICULAR FAILURE
     Dosage: UNKNOWN
     Route: 065

REACTIONS (3)
  - Encephalopathy [Recovering/Resolving]
  - Nystagmus [Recovering/Resolving]
  - Neurological decompensation [Recovering/Resolving]
